FAERS Safety Report 8967301 (Version 2)
Quarter: 2013Q4

REPORT INFORMATION
  Report Type: Spontaneous
  Country: US (occurrence: US)
  Receive Date: 20121214
  Receipt Date: 20131125
  Transmission Date: 20140711
  Serious: Yes (Hospitalization)
  Sender: FDA-Public Use
  Company Number: US-GLAXOSMITHKLINE-A0984461A

PATIENT
  Age: 59 Year
  Sex: Female

DRUGS (14)
  1. FLONASE [Suspect]
     Indication: MULTIPLE ALLERGIES
     Dosage: 2SPR PER DAY
     Route: 045
     Dates: start: 2000
  2. MORPHINE [Suspect]
     Indication: PAIN
     Route: 065
  3. LEVOTHYROXINE [Concomitant]
  4. LOTENSIN [Concomitant]
  5. VERAPAMIL [Concomitant]
  6. LYRICA [Concomitant]
  7. CYMBALTA [Concomitant]
  8. TAGAMET [Concomitant]
  9. DEXILANT [Concomitant]
  10. VITAMIN D [Concomitant]
  11. ACTOS [Concomitant]
  12. BLOOD PRESSURE MEDICATION [Concomitant]
  13. THYROID MEDICATION [Concomitant]
  14. DIABETES MEDICATION [Concomitant]

REACTIONS (10)
  - Vitamin D deficiency [Recovering/Resolving]
  - Coma [Unknown]
  - Memory impairment [Unknown]
  - Road traffic accident [Unknown]
  - Large intestine perforation [Unknown]
  - Fatigue [Unknown]
  - Abscess drainage [Unknown]
  - Ileostomy [Unknown]
  - Ileostomy closure [Unknown]
  - Medical induction of coma [Unknown]
